FAERS Safety Report 5442011-3 (Version None)
Quarter: 2007Q3

REPORT INFORMATION
  Report Type: 
  Country: None (occurrence: None)
  Receive Date: 20070829
  Receipt Date: 20070816
  Transmission Date: 20080115
  Serious: Yes (Other)
  Sender: FDA-Public Use
  Company Number: 2007EN000127

PATIENT
  Age: 38 Year
  Sex: Male
  Weight: 90.7194 kg

DRUGS (5)
  1. OPANA [Suspect]
     Indication: BACK PAIN
     Dosage: 10 MG;HS;
     Dates: start: 20060801
  2. OPANA ER [Suspect]
     Indication: BACK PAIN
     Dosage: 60 MG;BID;
     Dates: start: 20060801
  3. SOMA [Concomitant]
  4. VALIUM [Concomitant]
  5. FENTANYL [Concomitant]

REACTIONS (5)
  - BACK INJURY [None]
  - DRUG EFFECT DECREASED [None]
  - ERECTILE DYSFUNCTION [None]
  - FALL [None]
  - URINARY HESITATION [None]
